FAERS Safety Report 5015440-X (Version None)
Quarter: 2006Q2

REPORT INFORMATION
  Report Type: 
  Country: None (occurrence: None)
  Receive Date: 20060601
  Receipt Date: 20060519
  Transmission Date: 20061013
  Serious: Yes (Hospitalization)
  Sender: FDA-Public Use
  Company Number: PHEH2006US06747

PATIENT
  Sex: Male

DRUGS (1)
  1. EXJADE [Suspect]
     Dosage: 20 MG/KG, QD
     Route: 048
     Dates: start: 20060506

REACTIONS (4)
  - AMMONIA INCREASED [None]
  - LETHARGY [None]
  - NAUSEA [None]
  - VOMITING [None]
